FAERS Safety Report 9710367 (Version 1)
Quarter: 2013Q4

REPORT INFORMATION
  Report Type: Report from Study
  Country: NL (occurrence: NL)
  Receive Date: 20131126
  Receipt Date: 20131126
  Transmission Date: 20140711
  Serious: No
  Sender: FDA-Public Use
  Company Number: NL-B.I. PHARMACEUTICALS,INC./RIDGEFIELD-2013-BI-37327NL

PATIENT
  Age: 70 Year
  Sex: Male
  Weight: 81 kg

DRUGS (3)
  1. PERSANTIN [Suspect]
     Indication: TRANSIENT ISCHAEMIC ATTACK
     Dosage: 200 MG
     Dates: start: 20090606, end: 20130901
  2. BETAHISTINE [Suspect]
     Indication: MENIERE^S DISEASE
     Dosage: 48 MG
     Dates: start: 20130315
  3. ASCAL [Concomitant]
     Dosage: 100 MG
     Dates: start: 20090609

REACTIONS (4)
  - Hyperhidrosis [Not Recovered/Not Resolved]
  - Neuralgia [Not Recovered/Not Resolved]
  - Drug interaction [Unknown]
  - Paraesthesia [Not Recovered/Not Resolved]
